FAERS Safety Report 8935333 (Version 2)
Quarter: 2012Q4

REPORT INFORMATION
  Report Type: 
  Country: US (occurrence: US)
  Receive Date: 20121129
  Receipt Date: 20121210
  Transmission Date: 20130627
  Serious: Yes (Hospitalization, Other)
  Sender: FDA-Public Use
  Company Number: US-PFIZER INC-2012299934

PATIENT
  Age: 57 Year
  Sex: Male
  Weight: 95.24 kg

DRUGS (16)
  1. CHANTIX [Suspect]
     Indication: SMOKING CESSATION THERAPY
     Dosage: 1 mg, 1x/day
     Route: 048
     Dates: start: 2012
  2. CHANTIX [Suspect]
     Dosage: 1 mg, 2x/day
     Route: 048
     Dates: end: 201210
  3. SEROQUEL XR [Concomitant]
     Dosage: 150 mg, 1x/day
  4. NEURONTIN [Concomitant]
     Dosage: 300 mg, UNK
  5. COUMADIN [Concomitant]
     Dosage: UNK
  6. SPIRIVA [Concomitant]
     Dosage: UNK
  7. ADVAIR HFA [Concomitant]
     Indication: CHRONIC OBSTRUCTIVE PULMONARY DISEASE
     Dosage: UNK, 2x/day
  8. OXYGEN [Concomitant]
     Dosage: UNK
  9. PRAVASTATIN [Concomitant]
     Indication: HIGH CHOLESTEROL
     Dosage: 40 mg, UNK
  10. CARVEDILOL [Concomitant]
     Indication: BLOOD PRESSURE HIGH
     Dosage: 25 mg, 2x/day
  11. ALPRAZOLAM [Concomitant]
     Indication: ANXIETY
     Dosage: UNK, as needed
  12. AMLODIPINE [Concomitant]
     Indication: BLOOD PRESSURE HIGH
     Dosage: 10 mg, 1x/day
  13. NITROSTAT [Concomitant]
     Dosage: UNK
  14. ALLOPURINOL [Concomitant]
     Indication: GOUT
     Dosage: 100 mg, 2x/day
  15. GLIPIZIDE [Concomitant]
     Dosage: 10 mg, 2x/day
  16. PREDNISONE [Concomitant]
     Dosage: 10 mg, 3x/day

REACTIONS (6)
  - Pulmonary embolism [Unknown]
  - Phlebitis [Unknown]
  - Thrombosis [Unknown]
  - Anticoagulation drug level above therapeutic [Unknown]
  - Pneumonia [Unknown]
  - Nasopharyngitis [Unknown]
